FAERS Safety Report 9017527 (Version 1)
Quarter: 2013Q1

REPORT INFORMATION
  Report Type: Spontaneous
  Country: PE (occurrence: PE)
  Receive Date: 20130117
  Receipt Date: 20130117
  Transmission Date: 20140127
  Serious: Yes (Other)
  Sender: FDA-Public Use
  Company Number: PE-PFIZER INC-2013020071

PATIENT
  Age: 92 Year
  Sex: Female

DRUGS (1)
  1. NORVASTOR [Suspect]
     Dosage: UNK
     Route: 048
     Dates: end: 201212

REACTIONS (2)
  - Cardiac failure [Unknown]
  - Renal failure [Unknown]
